FAERS Safety Report 6333211-9 (Version None)
Quarter: 2009Q3

REPORT INFORMATION
  Report Type: 
  Country: None (occurrence: None)
  Receive Date: 20090828
  Receipt Date: 20090826
  Transmission Date: 20100115
  Serious: Yes (Hospitalization)
  Sender: FDA-Public Use
  Company Number: FR-BRISTOL-MYERS SQUIBB COMPANY-14756522

PATIENT
  Age: 74 Year
  Sex: Male

DRUGS (7)
  1. COUMADIN [Suspect]
     Dates: start: 20080101, end: 20090329
  2. ROCEPHIN [Suspect]
     Indication: ANTIBIOTIC THERAPY
     Route: 042
     Dates: start: 20090325
  3. FLAGYL [Suspect]
     Indication: ANTIBIOTIC THERAPY
     Dosage: TABLET FORM
  4. OFLOCET [Suspect]
     Indication: ANTIBIOTIC THERAPY
     Dosage: TABLET
     Dates: start: 20090325
  5. GLUCOPHAGE [Concomitant]
     Dosage: 1DF=1000 UNITS NOT SPECIFIED
  6. TAHOR [Concomitant]
     Dosage: 1 DF=10 UNITS NOT SPECIFIED
  7. ISOPTIN SR [Concomitant]
     Dosage: 1 DF=240 UNITS NOT SPECIFIED

REACTIONS (3)
  - ANAEMIA [None]
  - GASTROINTESTINAL HAEMORRHAGE [None]
  - HYPOPROTHROMBINAEMIA [None]
